FAERS Safety Report 8846239 (Version 1)
Quarter: 2012Q4

REPORT INFORMATION
  Report Type: 
  Country: JP (occurrence: JP)
  Receive Date: 20121017
  Receipt Date: 20121017
  Transmission Date: 20130627
  Serious: Yes (Death, Disabling, Other)
  Sender: FDA-Public Use
  Company Number: JP-TEVA-363914ISR

PATIENT
  Age: 12 Year
  Sex: Female
  Weight: 48 kg

DRUGS (3)
  1. PREDNISOLONE [Suspect]
     Indication: SYSTEMIC LUPUS ERYTHEMATOSUS
     Dosage: 10 Milligram Daily;
     Route: 048
  2. CALCITRIOL [Concomitant]
     Indication: OSTEOPOROSIS PROPHYLAXIS
     Dosage: 0.25 micrograms/day
     Route: 065
  3. RISEDRONIC ACID [Concomitant]
     Indication: OSTEOPOROSIS PROPHYLAXIS
     Dosage: 2.5 mg/day
     Route: 065

REACTIONS (4)
  - Cardiac failure [Fatal]
  - Osteoporosis [Fatal]
  - Pulmonary hypertension [Unknown]
  - Spinal fracture [Unknown]
